FAERS Safety Report 12473513 (Version 1)
Quarter: 2016Q2

REPORT INFORMATION
  Report Type: Spontaneous
  Country: US (occurrence: US)
  Receive Date: 20160616
  Receipt Date: 20160616
  Transmission Date: 20160815
  Serious: Yes (Disabling)
  Sender: FDA-Public Use
  Company Number: US-BAUSCH-BL-2016-013736

PATIENT
  Sex: Female
  Weight: 83.99 kg

DRUGS (1)
  1. ANUSOL HC SUPPOSITORY [Suspect]
     Active Substance: HYDROCORTISONE ACETATE
     Indication: HAEMORRHOIDS
     Dosage: AS NEEDED
     Route: 054

REACTIONS (6)
  - Disability [Not Recovered/Not Resolved]
  - Fatigue [Not Recovered/Not Resolved]
  - Discomfort [Not Recovered/Not Resolved]
  - Drug dose omission [Unknown]
  - Crying [Not Recovered/Not Resolved]
  - Hypertension [Not Recovered/Not Resolved]
